FAERS Safety Report 18404113 (Version 2)
Quarter: 2020Q4

REPORT INFORMATION
  Report Type: Spontaneous
  Country: US (occurrence: US)
  Receive Date: 20201020
  Receipt Date: 20201030
  Transmission Date: 20210114
  Serious: No
  Sender: FDA-Public Use
  Company Number: US-SUNOVION-2020SUN002999

PATIENT
  Age: 67 Year
  Sex: Male

DRUGS (3)
  1. KYNMOBI [Suspect]
     Active Substance: APOMORPHINE HYDROCHLORIDE
     Dosage: 20 MG
     Route: 060
     Dates: start: 20201008
  2. KYNMOBI [Suspect]
     Active Substance: APOMORPHINE HYDROCHLORIDE
     Dosage: 10 MG
     Route: 060
  3. KYNMOBI [Suspect]
     Active Substance: APOMORPHINE HYDROCHLORIDE
     Dosage: 15 MG
     Route: 060
     Dates: start: 20201007

REACTIONS (3)
  - Somnolence [Unknown]
  - Fatigue [Unknown]
  - Tremor [Unknown]

NARRATIVE: CASE EVENT DATE: 20201007
